FAERS Safety Report 6492042-X (Version None)
Quarter: 2009Q4

REPORT INFORMATION
  Report Type: 
  Country: None (occurrence: None)
  Receive Date: 20091125
  Receipt Date: 20090323
  Transmission Date: 20100525
  Serious: Yes (Other)
  Sender: FDA-Public Use
  Company Number: 2009BH004719

PATIENT
  Age: 36 Year
  Sex: Male

DRUGS (9)
  1. DIANEAL [Suspect]
     Indication: PERITONEAL DIALYSIS
     Dosage: 10 L; EVERY DAY; IP
     Route: 033
     Dates: start: 20090303
  2. DIANEAL [Suspect]
     Indication: PERITONEAL DIALYSIS
     Dosage: 10 L; EVERY DAY; IP
     Route: 032
     Dates: start: 20090126, end: 20090303
  3. CALCIUM WITH VITAMIN D [Concomitant]
  4. PROTONIX [Concomitant]
  5. HECTOROL [Concomitant]
  6. PHOSLO [Concomitant]
  7. MIRALAX [Concomitant]
  8. ERGOCALCIFEROL [Concomitant]
  9. NEPHROCAPS [Concomitant]

REACTIONS (2)
  - PERITONEAL DIALYSIS COMPLICATION [None]
  - PERITONITIS BACTERIAL [None]
